FAERS Safety Report 22265934 (Version 1)
Quarter: 2023Q2

REPORT INFORMATION
  Report Type: Spontaneous
  Country: US (occurrence: US)
  Receive Date: 20230428
  Receipt Date: 20230428
  Transmission Date: 20230721
  Serious: Yes (Other)
  Sender: FDA-Public Use
  Company Number: US-APOTEX-2023AP007580

PATIENT
  Age: 24 Year
  Sex: Male

DRUGS (2)
  1. FENTANYL [Suspect]
     Active Substance: FENTANYL
     Indication: Product used for unknown indication
     Dosage: UNK
     Route: 065
  2. HEROIN [Suspect]
     Active Substance: DIAMORPHINE
     Indication: Product used for unknown indication
     Dosage: SNORTING HALF A CAPSULE

REACTIONS (8)
  - Agonal respiration [Unknown]
  - Loss of consciousness [Unknown]
  - Drug abuse [Unknown]
  - Dysarthria [Unknown]
  - Flushing [Unknown]
  - Impaired driving ability [Unknown]
  - Miosis [Unknown]
  - Hyperhidrosis [Unknown]
